FAERS Safety Report 7802118-X (Version None)
Quarter: 2011Q4

REPORT INFORMATION
  Report Type: 
  Country: None (occurrence: None)
  Receive Date: 20111007
  Receipt Date: 20111006
  Transmission Date: 20120403
  Serious: Yes (Death)
  Sender: FDA-Public Use
  Company Number: NZ-B.I. PHARMACEUTICALS,INC./RIDGEFIELD-2011-AU-01701AU

PATIENT

DRUGS (1)
  1. PRADAXA [Suspect]
     Dates: end: 20110801

REACTIONS (2)
  - DEATH [None]
  - RASH [None]
